FAERS Safety Report 6454778-6 (Version None)
Quarter: 2009Q4

REPORT INFORMATION
  Report Type: 
  Country: None (occurrence: None)
  Receive Date: 20091118
  Receipt Date: 20091002
  Transmission Date: 20100525
  Serious: Yes (Hospitalization)
  Sender: FDA-Public Use
  Company Number: 2009-191677-NL

PATIENT
  Age: 28 Year
  Sex: Female
  Weight: 50 kg

DRUGS (3)
  1. PUREGON (FOLLITROPIN BETA) [Suspect]
     Indication: OVARIAN DISORDER
     Dosage: 150 IU, QD, SC
     Route: 058
     Dates: start: 20080204, end: 20080331
  2. OVITRELLE [Concomitant]
  3. UTROGESTAN [Concomitant]

REACTIONS (6)
  - ANAEMIA [None]
  - BLOOD PRESSURE DECREASED [None]
  - CHORIOCARCINOMA [None]
  - COAGULOPATHY [None]
  - PLACENTAL DISORDER [None]
  - UTERINE PERFORATION [None]
